FAERS Safety Report 12138539 (Version 1)
Quarter: 2016Q1

REPORT INFORMATION
  Report Type: Spontaneous
  Country: DK (occurrence: DK)
  Receive Date: 20160302
  Receipt Date: 20160302
  Transmission Date: 20160526
  Serious: Yes (Hospitalization)
  Sender: FDA-Public Use
  Company Number: DK-BAYER-2016-038924

PATIENT
  Age: 40 Year
  Sex: Female

DRUGS (5)
  1. LANSOPRAZOL RATIOPHARMA [Concomitant]
     Indication: DYSPEPSIA
     Dates: start: 20150320, end: 20150515
  2. PINEX [Concomitant]
     Active Substance: ACETAMINOPHEN
     Indication: PAIN
     Dates: start: 20150327
  3. AERIUS [Concomitant]
     Active Substance: DESLORATADINE
     Indication: SEASONAL ALLERGY
     Dates: start: 20150327
  4. GADOVIST [Suspect]
     Active Substance: GADOBUTROL
     Indication: NUCLEAR MAGNETIC RESONANCE IMAGING
     Dosage: 7.5 ML, UNK
     Route: 042
     Dates: start: 20150512, end: 20150512
  5. MINI-PE [Concomitant]
     Indication: CONTRACEPTION
     Dates: start: 20121120

REACTIONS (3)
  - Eye swelling [Recovered/Resolved]
  - Dysphonia [Recovered/Resolved]
  - Rash [Recovered/Resolved]

NARRATIVE: CASE EVENT DATE: 20150512
